FAERS Safety Report 4996346-9 (Version None)
Quarter: 2006Q2

REPORT INFORMATION
  Report Type: 
  Country: None (occurrence: None)
  Receive Date: 20060505
  Receipt Date: 20060502
  Transmission Date: 20061013
  Serious: Yes (Hospitalization)
  Sender: FDA-Public Use
  Company Number: S06-FRA-01311-01

PATIENT
  Age: 96 Year
  Sex: Male

DRUGS (7)
  1. CITALOPRAM HYDROBROMIDE [Suspect]
     Indication: DYSTHYMIC DISORDER
     Dosage: 0.5 QD; PO
     Route: 048
     Dates: start: 20060118
  2. OMEPRAZOLE [Suspect]
     Dosage: 20 MG QD; PO
     Route: 048
     Dates: start: 20060209
  3. LASIX [Concomitant]
  4. TADENAN (PYGEUM AFRICANUM) [Concomitant]
  5. LEVONOX (HEPARIN-FRACTION, SODIUM SALT) [Concomitant]
  6. RAMIPRIL [Concomitant]
  7. DIGOXIN [Concomitant]

REACTIONS (6)
  - ANAEMIA [None]
  - DYSTHYMIC DISORDER [None]
  - HAEMATOMA [None]
  - HAEMORRHAGE [None]
  - IDIOPATHIC THROMBOCYTOPENIC PURPURA [None]
  - MUSCLE HAEMORRHAGE [None]
